FAERS Safety Report 16494829 (Version 1)
Quarter: 2019Q2

REPORT INFORMATION
  Report Type: Spontaneous
  Country: ES (occurrence: ES)
  Receive Date: 20190628
  Receipt Date: 20190628
  Transmission Date: 20190711
  Serious: Yes (Other)
  Sender: FDA-Public Use
  Company Number: ES-TEVA-2019-ES-1070808

PATIENT
  Age: 86 Year
  Sex: Male
  Weight: 74.5 kg

DRUGS (9)
  1. KENTERA 3,9 MG/24 HORAS, PARCHE TRANSDERMICO, 8 PARCHES [Suspect]
     Active Substance: OXYBUTYNIN
     Dosage: 3.9 MICROGRAM PER 72 HRS
     Route: 062
     Dates: end: 20171212
  2. APOCARD 100 MG COMPRIMIDOS , 60 COMPRIMIDOS [Concomitant]
     Active Substance: FLECAINIDE ACETATE
     Dosage: 100MG PER 12HR
     Route: 048
  3. SERACTIL 400 MG COMPRIMIDOS RECUBIERTOS CON PELICULA, 30 COMPRIMIDOS [Concomitant]
     Dosage: 400 MG PER 12 HRS
     Route: 048
  4. DULOXETINA (7421A) [Concomitant]
     Active Substance: DULOXETINE
     Dosage: 30MG PER DAY
     Route: 048
  5. OMEPRAZOL (2141A) [Concomitant]
     Active Substance: OMEPRAZOLE
     Dosage: 20MG PER DAY
     Route: 048
  6. CLONAZEPAM (635A) [Concomitant]
     Active Substance: CLONAZEPAM
     Dosage: 0.5MG PER DAY
     Route: 048
  7. AMOROLFINA (7013A) [Concomitant]
     Route: 061
  8. VALSART?N + HIDROCLOROTIAZIDA [Concomitant]
     Active Substance: HYDROCHLOROTHIAZIDE\VALSARTAN
     Dosage: 1DOSAGE FORM PER DAY
     Route: 048
  9. ACETILSALICILICO ACIDO (176A) [Concomitant]
     Active Substance: ASPIRIN
     Dosage: 100 MG PER DAY
     Route: 048

REACTIONS (2)
  - Constipation [Recovered/Resolved]
  - Syncope [Recovered/Resolved]

NARRATIVE: CASE EVENT DATE: 20171203
